FAERS Safety Report 20674300 (Version 1)
Quarter: 2022Q2

REPORT INFORMATION
  Report Type: Spontaneous
  Country: ES (occurrence: ES)
  Receive Date: 20220405
  Receipt Date: 20220405
  Transmission Date: 20220721
  Serious: Yes (Other)
  Sender: FDA-Public Use
  Company Number: ES-PFIZER INC-202200463378

PATIENT
  Age: 54 Year
  Sex: Male

DRUGS (1)
  1. DILTIAZEM HYDROCHLORIDE [Suspect]
     Active Substance: DILTIAZEM HYDROCHLORIDE

REACTIONS (3)
  - Erythema multiforme [Recovering/Resolving]
  - Dermatitis exfoliative generalised [Recovering/Resolving]
  - Dermatitis exfoliative [Recovering/Resolving]
